FAERS Safety Report 16276839 (Version 1)
Quarter: 2019Q2

REPORT INFORMATION
  Report Type: Report from Study
  Country: DE (occurrence: DE)
  Receive Date: 20190506
  Receipt Date: 20190506
  Transmission Date: 20190711
  Serious: Yes (Hospitalization)
  Sender: FDA-Public Use
  Company Number: DE-PFIZER INC-2019190403

PATIENT
  Age: 69 Year
  Sex: Male

DRUGS (12)
  1. PANTOZOL [Concomitant]
     Active Substance: PANTOPRAZOLE SODIUM
     Dosage: UNK
  2. BISOPROLOL [Concomitant]
     Active Substance: BISOPROLOL
     Dosage: UNK
  3. CLINDAMYCIN. [Concomitant]
     Active Substance: CLINDAMYCIN
     Dosage: UNK
  4. NO SUBJECT DRUG [Suspect]
     Active Substance: UNSPECIFIED INGREDIENT
     Dosage: NO DOSE GIVEN
  5. METHOTREXATE (METHOTREXATE SODIUM) [Suspect]
     Active Substance: METHOTREXATE SODIUM
     Dosage: UNK
     Dates: end: 201808
  6. HUMIRA [Suspect]
     Active Substance: ADALIMUMAB
     Dosage: UNK
     Dates: end: 201808
  7. TRAMAL [Concomitant]
     Active Substance: TRAMADOL
     Dosage: UNK
  8. PREDNISOLONE. [Concomitant]
     Active Substance: PREDNISOLONE
     Dosage: UNK
  9. AMOCLAV [Concomitant]
     Active Substance: AMOXICILLIN\CLAVULANATE POTASSIUM
     Dosage: UNK
  10. CALCIUM [Concomitant]
     Active Substance: CALCIUM
     Dosage: UNK
  11. RAMIPRIL. [Concomitant]
     Active Substance: RAMIPRIL
     Dosage: UNK
  12. CLEXANE [Concomitant]
     Active Substance: ENOXAPARIN SODIUM
     Dosage: UNK

REACTIONS (1)
  - Impaired healing [Not Recovered/Not Resolved]

NARRATIVE: CASE EVENT DATE: 20180803
